FAERS Safety Report 4284286-2 (Version None)
Quarter: 2004Q1

REPORT INFORMATION
  Report Type: 
  Country: None (occurrence: None)
  Receive Date: 20040202
  Receipt Date: 20040202
  Transmission Date: 20041129
  Serious: Yes (Life-Threatening, Hospitalization)
  Sender: FDA-Public Use
  Company Number: None

PATIENT
  Age: 21 Year
  Sex: Male
  Weight: 64.5 kg

DRUGS (4)
  1. VINCRISTINE [Suspect]
     Dates: start: 20040127
  2. CYTOXAN [Suspect]
     Dates: start: 20040127
  3. ACTINOMYCIN [Suspect]
     Dates: start: 20040127
  4. CYCLOPHOSPHAMIDE [Concomitant]

REACTIONS (3)
  - ANAEMIA [None]
  - HYPOTENSION [None]
  - SEPSIS [None]
